FAERS Safety Report 9849455 (Version 1)
Quarter: 2014Q1

REPORT INFORMATION
  Report Type: Spontaneous
  Country: US (occurrence: None)
  Receive Date: 20140127
  Receipt Date: 20140127
  Transmission Date: 20141002
  Serious: Yes (Hospitalization)
  Sender: FDA-Public Use
  Company Number: None

PATIENT
  Age: 62 None
  Sex: Male
  Weight: 112.2 kg

DRUGS (1)
  1. NAPROXEN [Suspect]
     Indication: PAIN
     Route: 048
     Dates: start: 20130117, end: 20130205

REACTIONS (4)
  - Dyspnoea [None]
  - Dyspnoea exertional [None]
  - Oedema [None]
  - Cardiac failure [None]
